FAERS Safety Report 20893373 (Version 1)
Quarter: 2022Q2

REPORT INFORMATION
  Report Type: Spontaneous
  Country: US (occurrence: US)
  Receive Date: 20220531
  Receipt Date: 20220531
  Transmission Date: 20220720
  Serious: Yes (Other)
  Sender: FDA-Public Use
  Company Number: US-STRIDES ARCOLAB LIMITED-2022SP001274

PATIENT
  Age: 32 Year
  Sex: Female

DRUGS (7)
  1. ACYCLOVIR [Suspect]
     Active Substance: ACYCLOVIR
     Indication: Mass
     Dosage: 400 MILLIRAM, TID FOR 10 DAYS (ADMINISTERED THREE TIMES DAY FOR 10 DAYS)
     Route: 048
  2. ACYCLOVIR [Suspect]
     Active Substance: ACYCLOVIR
     Indication: Genital herpes
     Dosage: 5 MILLIGRAM/KILOGRAM, EVERY 8 HRS
     Route: 042
  3. VALACYCLOVIR [Suspect]
     Active Substance: VALACYCLOVIR HYDROCHLORIDE
     Indication: Mass
     Dosage: 1 GRAM, BID FOR 10 DAYS (ADMINISTERED 10 DAYS.(0.5 PER DAY))
     Route: 065
  4. VALACYCLOVIR [Suspect]
     Active Substance: VALACYCLOVIR HYDROCHLORIDE
     Indication: Genital herpes
     Dosage: 1 MILLIGRAM PER DAY
     Route: 048
  5. VALACYCLOVIR [Suspect]
     Active Substance: VALACYCLOVIR HYDROCHLORIDE
     Dosage: 1 GRAM DAILY
     Route: 048
  6. IMIQUIMOD [Suspect]
     Active Substance: IMIQUIMOD
     Indication: Mass
     Dosage: UNK (APPLIED TIMES A WEEK FOR 6 WEEKS, CONTINUED FOR ADDITIONAL 10 WEEKS, CONTINUED FOR A TOTAL OF 7
     Route: 061
  7. IMIQUIMOD [Suspect]
     Active Substance: IMIQUIMOD
     Indication: Genital herpes

REACTIONS (2)
  - Drug ineffective [Unknown]
  - Off label use [Unknown]
